FAERS Safety Report 12168986 (Version 1)
Quarter: 2016Q1

REPORT INFORMATION
  Report Type: Report from Study
  Country: US (occurrence: US)
  Receive Date: 20160310
  Receipt Date: 20160310
  Transmission Date: 20160526
  Serious: Yes (Other)
  Sender: FDA-Public Use
  Company Number: US-DSJP-DSU-2016-108673

PATIENT

DRUGS (1)
  1. EDOXABAN [Suspect]
     Active Substance: EDOXABAN TOSYLATE
     Indication: ATRIAL FIBRILLATION
     Dosage: 60 MG, QD
     Dates: start: 201510

REACTIONS (5)
  - Surgery [Unknown]
  - Unevaluable event [Unknown]
  - Haematuria [Unknown]
  - Nephrolithiasis [Unknown]
  - Cardioversion [Recovered/Resolved]

NARRATIVE: CASE EVENT DATE: 2015
